FAERS Safety Report 25856260 (Version 4)
Quarter: 2025Q4

REPORT INFORMATION
  Report Type: Spontaneous
  Country: US (occurrence: US)
  Receive Date: 20250928
  Receipt Date: 20251201
  Transmission Date: 20260118
  Serious: No
  Sender: JOHNSON AND JOHNSON
  Company Number: US-JNJFOC-20250941678

PATIENT
  Sex: Male

DRUGS (3)
  1. TREMFYA [Suspect]
     Active Substance: GUSELKUMAB
     Indication: Product used for unknown indication
     Dosage: 200 MG/ 2 ML
     Route: 058
     Dates: start: 20250825
  2. ALLOPURINOL [Concomitant]
     Active Substance: ALLOPURINOL
     Indication: Gout
     Route: 065
     Dates: start: 20250101
  3. COLESTIPOL [Concomitant]
     Active Substance: COLESTIPOL
     Indication: Bile acid malabsorption
     Route: 065
     Dates: start: 20250101

REACTIONS (2)
  - Product dose omission issue [Unknown]
  - Device issue [Unknown]
